FAERS Safety Report 4434146-9 (Version None)
Quarter: 2004Q3

REPORT INFORMATION
  Report Type: 
  Country: None (occurrence: None)
  Receive Date: 20040825
  Receipt Date: 20040817
  Transmission Date: 20050211
  Serious: Yes (Hospitalization, Other)
  Sender: FDA-Public Use
  Company Number: 2004229027TW

PATIENT
  Age: 66 Year
  Sex: Female

DRUGS (3)
  1. HEPARIN SODIUM [Suspect]
     Indication: THROMBOSIS PROPHYLAXIS
     Dosage: SEE IMAGE
     Route: 042
  2. DOXORUBICIN (DOXORUBICIN) [Concomitant]
  3. CYCLOPHOSPHAMIDE [Concomitant]

REACTIONS (8)
  - AXILLARY VEIN THROMBOSIS [None]
  - CELLULITIS [None]
  - CYANOSIS [None]
  - DEEP VEIN THROMBOSIS [None]
  - HEPARIN-INDUCED THROMBOCYTOPENIA [None]
  - INJECTION SITE ERYTHEMA [None]
  - PHLEBITIS [None]
  - SUBCLAVIAN VEIN THROMBOSIS [None]
